FAERS Safety Report 25623554 (Version 1)
Quarter: 2025Q3

REPORT INFORMATION
  Report Type: Spontaneous
  Country: US (occurrence: None)
  Receive Date: 20250730
  Receipt Date: 20250730
  Transmission Date: 20251020
  Serious: No
  Sender: FDA-CTU
  Company Number: None

PATIENT

DRUGS (1)
  1. 7-HYDROXYMITRAGYNINE [Suspect]
     Active Substance: 7-HYDROXYMITRAGYNINE
     Indication: Cancer pain
     Dosage: 0.5 TABLETS TWICE A DAY ORAL
     Route: 048

REACTIONS (3)
  - Blood lead increased [None]
  - Product contamination physical [None]
  - Metal poisoning [None]
